FAERS Safety Report 15222359 (Version 2)
Quarter: 2018Q3

REPORT INFORMATION
  Report Type: Spontaneous
  Country: JP (occurrence: JP)
  Receive Date: 20180731
  Receipt Date: 20180814
  Transmission Date: 20181010
  Serious: Yes (Other)
  Sender: FDA-Public Use
  Company Number: JP-BAYER-2018-138134

PATIENT
  Age: 78 Year
  Sex: Male

DRUGS (2)
  1. DENOSUMAB [Concomitant]
     Active Substance: DENOSUMAB
  2. XOFIGO [Suspect]
     Active Substance: RADIUM RA-223 DICHLORIDE
     Indication: HORMONE-REFRACTORY PROSTATE CANCER
     Dosage: UNK UNK, Q1MON
     Route: 042
     Dates: start: 20180126, end: 20180615

REACTIONS (10)
  - Oedema [Recovered/Resolved]
  - Prostatic specific antigen increased [Recovered/Resolved]
  - Dizziness [Recovered/Resolved]
  - Pain [None]
  - Decreased appetite [Recovered/Resolved]
  - Pneumonia [None]
  - Anaemia [Recovered/Resolved]
  - Blood alkaline phosphatase increased [None]
  - Diarrhoea [Recovered/Resolved]
  - Fatigue [Recovered/Resolved]
